FAERS Safety Report 18754301 (Version 2)
Quarter: 2021Q1

REPORT INFORMATION
  Report Type: Other
  Country: CA (occurrence: CA)
  Receive Date: 20210119
  Receipt Date: 20210120
  Transmission Date: 20210419
  Serious: Yes (Other)
  Sender: FDA-Public Use
  Company Number: CA-ROCHE-2752160

PATIENT
  Age: 59 Year
  Sex: Male
  Weight: 113.4 kg

DRUGS (10)
  1. COVERSYL [Concomitant]
     Active Substance: PERINDOPRIL
  2. METHOTREXATE. [Concomitant]
     Active Substance: METHOTREXATE
  3. ROSUVASTATIN. [Concomitant]
     Active Substance: ROSUVASTATIN
  4. SYNTHROID [Concomitant]
     Active Substance: LEVOTHYROXINE SODIUM
  5. RITUXAN [Suspect]
     Active Substance: RITUXIMAB
     Indication: RHEUMATOID ARTHRITIS
     Dosage: LAST INFUSION GIVEN: 29/MAY/2020
     Route: 042
     Dates: start: 20180427
  6. ACETYLSALICYLIC ACID [Concomitant]
     Active Substance: ASPIRIN
  7. FOLIC ACID. [Concomitant]
     Active Substance: FOLIC ACID
  8. LEFLUNOMIDE. [Concomitant]
     Active Substance: LEFLUNOMIDE
  9. BISOPROLOL [Concomitant]
     Active Substance: BISOPROLOL
  10. FERROUS FUMARATE [Concomitant]
     Active Substance: FERROUS FUMARATE

REACTIONS (5)
  - Type 2 diabetes mellitus [Not Recovered/Not Resolved]
  - Hepatic enzyme increased [Unknown]
  - Hepatic cancer [Unknown]
  - Cholelithiasis [Not Recovered/Not Resolved]
  - Hepatic steatosis [Unknown]

NARRATIVE: CASE EVENT DATE: 20201201
